FAERS Safety Report 7752771-4 (Version None)
Quarter: 2011Q3

REPORT INFORMATION
  Report Type: 
  Country: None (occurrence: None)
  Receive Date: 20110915
  Receipt Date: 20110912
  Transmission Date: 20111222
  Serious: Yes (Death)
  Sender: FDA-Public Use
  Company Number: DK-B.I. PHARMACEUTICALS,INC./RIDGEFIELD-2010-SW-00411DB

PATIENT
  Age: 87 Year
  Sex: Male
  Weight: 70 kg

DRUGS (2)
  1. WARFARIN SODIUM [Suspect]
     Indication: ATRIAL FIBRILLATION
     Dosage: 5 MG
     Route: 048
     Dates: start: 20091201
  2. PRADAXA [Suspect]
     Indication: ATRIAL FIBRILLATION
     Dosage: 110 MG
     Route: 048
     Dates: start: 20100120

REACTIONS (5)
  - CARDIAC ARREST [None]
  - DUODENAL ULCER HAEMORRHAGE [None]
  - DRUG INTERACTION [None]
  - GASTRIC ULCER HAEMORRHAGE [None]
  - GASTROINTESTINAL HAEMORRHAGE [None]
